FAERS Safety Report 7860638-6 (Version None)
Quarter: 2011Q4

REPORT INFORMATION
  Report Type: 
  Country: None (occurrence: None)
  Receive Date: 20111027
  Receipt Date: 20111018
  Transmission Date: 20120403
  Serious: Yes (Other)
  Sender: FDA-Public Use
  Company Number: US-BAYER-2011-100971

PATIENT
  Age: 20 Year
  Sex: Female

DRUGS (1)
  1. MIRENA [Suspect]
     Indication: CONTRACEPTION
     Dosage: 20 MCG/24HR, CONT
     Route: 015
     Dates: start: 20110214

REACTIONS (5)
  - POST PROCEDURAL HAEMORRHAGE [None]
  - BLADDER DISORDER [None]
  - AMENORRHOEA [None]
  - VAGINAL DISCHARGE [None]
  - CERVIX INFLAMMATION [None]
